FAERS Safety Report 5821914-1 (Version None)
Quarter: 2008Q3

REPORT INFORMATION
  Report Type: 
  Country: None (occurrence: None)
  Receive Date: 20080724
  Receipt Date: 20080716
  Transmission Date: 20090109
  Serious: Yes (Other)
  Sender: FDA-Public Use
  Company Number: ES-PFIZER INC-2008058666

PATIENT
  Age: 64 Year
  Sex: Male

DRUGS (6)
  1. ATORVASTATIN CALCIUM [Suspect]
     Indication: CEREBROVASCULAR ACCIDENT
     Route: 048
     Dates: start: 20071201, end: 20080201
  2. DIAMICRON [Concomitant]
  3. ENALAPRIL MALEATE [Concomitant]
  4. METFORMIN [Concomitant]
  5. OMEPRAZOLE [Concomitant]
  6. SINTROM [Concomitant]

REACTIONS (1)
  - HEPATITIS TOXIC [None]
